FAERS Safety Report 21959848 (Version 2)
Quarter: 2023Q1

REPORT INFORMATION
  Report Type: Spontaneous
  Country: US (occurrence: US)
  Receive Date: 20230206
  Receipt Date: 20230220
  Transmission Date: 20230418
  Serious: Yes (Other)
  Sender: FDA-Public Use
  Company Number: US-JNJFOC-20230206004

PATIENT
  Age: 7 Decade
  Sex: Female

DRUGS (38)
  1. ELMIRON [Suspect]
     Active Substance: PENTOSAN POLYSULFATE SODIUM
     Indication: Cystitis interstitial
     Dosage: 300 MG PER DAY
     Route: 048
     Dates: end: 2000
  2. ELMIRON [Suspect]
     Active Substance: PENTOSAN POLYSULFATE SODIUM
     Dosage: 300 MG PER DAY
     Route: 048
     Dates: start: 2000, end: 201504
  3. ELMIRON [Suspect]
     Active Substance: PENTOSAN POLYSULFATE SODIUM
     Dosage: 300 MG PER DAY
     Route: 048
     Dates: start: 20160616, end: 20171108
  4. ELMIRON [Suspect]
     Active Substance: PENTOSAN POLYSULFATE SODIUM
     Dosage: 300 MG PER DAY
     Route: 048
     Dates: start: 20171109, end: 20210204
  5. FAMOTIDINE [Concomitant]
     Active Substance: FAMOTIDINE
     Indication: Antacid therapy
     Dates: start: 20080717, end: 20090811
  6. FAMOTIDINE [Concomitant]
     Active Substance: FAMOTIDINE
     Dates: start: 20180517
  7. TOPAMAX [Concomitant]
     Active Substance: TOPIRAMATE
     Indication: Migraine prophylaxis
     Dates: start: 20080928, end: 200910
  8. TOPAMAX [Concomitant]
     Active Substance: TOPIRAMATE
     Dates: start: 20140301, end: 201807
  9. TOPAMAX [Concomitant]
     Active Substance: TOPIRAMATE
     Dates: start: 20181215, end: 201911
  10. HYDROCHLOROTHIAZIDE [Concomitant]
     Active Substance: HYDROCHLOROTHIAZIDE
     Indication: Meniere^s disease
     Dates: start: 20080910, end: 20091120
  11. HYDROCHLOROTHIAZIDE [Concomitant]
     Active Substance: HYDROCHLOROTHIAZIDE
     Dates: start: 20150929
  12. MELOXICAM [Concomitant]
     Active Substance: MELOXICAM
     Indication: Arthritis
     Dates: start: 20090107, end: 20091117
  13. MELOXICAM [Concomitant]
     Active Substance: MELOXICAM
     Dates: start: 20180517
  14. FLOVENT HFA [Concomitant]
     Active Substance: FLUTICASONE PROPIONATE
     Indication: Asthma
     Dates: start: 20090211
  15. PROAIR HFA [Concomitant]
     Active Substance: ALBUTEROL SULFATE
     Indication: Asthma
     Dates: start: 20140409
  16. MEDROXYPROGESTERONE ACETATE [Concomitant]
     Active Substance: MEDROXYPROGESTERONE ACETATE
     Indication: Blood oestrogen
     Dates: start: 20090805
  17. BUPROPION [Concomitant]
     Active Substance: BUPROPION
     Dates: start: 20140408
  18. ESTRING [Concomitant]
     Active Substance: ESTRADIOL
     Indication: Blood oestrogen
     Dates: start: 20140417
  19. TRAMADOL HCL [Concomitant]
     Active Substance: TRAMADOL HYDROCHLORIDE
     Indication: Pain
     Dates: start: 20160811
  20. MINOCYCLINE HYDROCHLORIDE [Concomitant]
     Active Substance: MINOCYCLINE HYDROCHLORIDE
     Indication: Rosacea
     Dates: start: 20160126, end: 20160501
  21. MINOCYCLINE HYDROCHLORIDE [Concomitant]
     Active Substance: MINOCYCLINE HYDROCHLORIDE
     Dates: start: 20171120, end: 20180315
  22. MINOCYCLINE HYDROCHLORIDE [Concomitant]
     Active Substance: MINOCYCLINE HYDROCHLORIDE
     Dates: start: 20180316, end: 20210112
  23. MINOCYCLINE HYDROCHLORIDE [Concomitant]
     Active Substance: MINOCYCLINE HYDROCHLORIDE
     Dates: start: 20210113, end: 20220109
  24. MINOCYCLINE HYDROCHLORIDE [Concomitant]
     Active Substance: MINOCYCLINE HYDROCHLORIDE
     Dates: start: 20220110, end: 20220620
  25. ATORVASTATIN CALCIUM [Concomitant]
     Active Substance: ATORVASTATIN CALCIUM
     Indication: Blood cholesterol
     Dates: start: 20151112
  26. LOSARTAN POTASSIUM [Concomitant]
     Active Substance: LOSARTAN POTASSIUM
     Indication: Hypertension
     Dates: start: 20180208, end: 20180503
  27. LOSARTAN POTASSIUM [Concomitant]
     Active Substance: LOSARTAN POTASSIUM
     Dates: start: 20190619, end: 20220713
  28. SUMATRIPTAN SUCCINATE [Concomitant]
     Active Substance: SUMATRIPTAN SUCCINATE
     Indication: Migraine
     Dates: start: 20081207, end: 20160326
  29. SUMATRIPTAN SUCCINATE [Concomitant]
     Active Substance: SUMATRIPTAN SUCCINATE
     Dates: start: 20170216, end: 20170819
  30. SUMATRIPTAN SUCCINATE [Concomitant]
     Active Substance: SUMATRIPTAN SUCCINATE
     Dates: start: 20190315, end: 20191024
  31. SUMATRIPTAN SUCCINATE [Concomitant]
     Active Substance: SUMATRIPTAN SUCCINATE
     Dates: start: 20200827, end: 20201125
  32. SUMATRIPTAN SUCCINATE [Concomitant]
     Active Substance: SUMATRIPTAN SUCCINATE
     Dates: start: 20220219, end: 20220520
  33. METRONIDAZOLE [Concomitant]
     Active Substance: METRONIDAZOLE
     Indication: Fungal infection
     Dates: start: 20180719, end: 20190116
  34. GABAPENTIN [Concomitant]
     Active Substance: GABAPENTIN
     Indication: Arthralgia
     Dates: start: 20190620, end: 20191231
  35. GABAPENTIN [Concomitant]
     Active Substance: GABAPENTIN
     Dates: start: 20200130, end: 20220426
  36. TESTOSTERONE CYPIONATE [Concomitant]
     Active Substance: TESTOSTERONE CYPIONATE
     Indication: Hyperandrogenism
     Dates: start: 20170608, end: 20171126
  37. TESTOSTERONE CYPIONATE [Concomitant]
     Active Substance: TESTOSTERONE CYPIONATE
     Dates: start: 20180216, end: 20180517
  38. TESTOSTERONE CYPIONATE [Concomitant]
     Active Substance: TESTOSTERONE CYPIONATE
     Dates: start: 20180706, end: 20190113

REACTIONS (3)
  - Dry age-related macular degeneration [Not Recovered/Not Resolved]
  - Myopic chorioretinal degeneration [Unknown]
  - Maculopathy [Unknown]

NARRATIVE: CASE EVENT DATE: 20190101
